FAERS Safety Report 5524232-4 (Version None)
Quarter: 2007Q4

REPORT INFORMATION
  Report Type: 
  Country: None (occurrence: None)
  Receive Date: 20071121
  Receipt Date: 20071113
  Transmission Date: 20080405
  Serious: Yes (Other)
  Sender: FDA-Public Use
  Company Number: US-PFIZER INC-2007078807

PATIENT
  Sex: Female
  Weight: 87.5 kg

DRUGS (6)
  1. CHANTIX [Suspect]
     Indication: SMOKING CESSATION THERAPY
     Dates: start: 20070915, end: 20070918
  2. LIPITOR [Concomitant]
  3. KLONOPIN [Concomitant]
  4. AMOXAPINE [Concomitant]
  5. ZIAC [Concomitant]
  6. ADDERALL 10 [Concomitant]

REACTIONS (2)
  - ACTIVITIES OF DAILY LIVING IMPAIRED [None]
  - DIZZINESS [None]
